FAERS Safety Report 4309539-0 (Version None)
Quarter: 2004Q1

REPORT INFORMATION
  Report Type: 
  Country: None (occurrence: None)
  Receive Date: 20040302
  Receipt Date: 20040223
  Transmission Date: 20041129
  Serious: Yes (Death)
  Sender: FDA-Public Use
  Company Number: 2004UW03165

PATIENT
  Age: 39 Year
  Sex: Female
  Weight: 77.1115 kg

DRUGS (7)
  1. SEROQUEL [Suspect]
     Indication: DEPRESSION
     Dosage: 400 MG BID PO
     Route: 048
  2. KLONOPIN [Concomitant]
  3. LEXAPRO [Concomitant]
  4. THORAZINE [Concomitant]
  5. TRAZODONE HCL [Concomitant]
  6. AMBIEN [Concomitant]
  7. PROPOXYPHENE NAPSYLATE [Concomitant]

REACTIONS (1)
  - COMPLETED SUICIDE [None]
